FAERS Safety Report 13897549 (Version 1)
Quarter: 2017Q3

REPORT INFORMATION
  Report Type: Spontaneous
  Country: US (occurrence: US)
  Receive Date: 20170823
  Receipt Date: 20170823
  Transmission Date: 20171127
  Serious: No
  Sender: FDA-Public Use
  Company Number: US-COLLEGIUM PHARMACEUTICAL, INC.-2017CGM00055

PATIENT
  Age: 63 Year
  Sex: Male
  Weight: 111.11 kg

DRUGS (6)
  1. XTAMPZA ER [Suspect]
     Active Substance: OXYCODONE
     Indication: BACK PAIN
     Dosage: 36 MG, 2X/DAY
     Route: 048
     Dates: start: 2017
  2. OPANA [Concomitant]
     Active Substance: OXYMORPHONE HYDROCHLORIDE
     Dosage: 10 MG, 1X/DAY AS NEEDED
  3. PROVIGIL [Concomitant]
     Active Substance: MODAFINIL
     Dosage: 200 MG, 2X/DAY
  4. SUMATRIPTAN. [Concomitant]
     Active Substance: SUMATRIPTAN
     Dosage: 100 MG, AS NEEDED TWICE DAILY
  5. TIZANIDINE. [Concomitant]
     Active Substance: TIZANIDINE
     Dosage: 1 TO 2 TABLETS, AS NEEDED
  6. DIETHYLPROPION [Concomitant]
     Active Substance: DIETHYLPROPION
     Dosage: 25 MG, 3X/DAY

REACTIONS (1)
  - Abdominal discomfort [Not Recovered/Not Resolved]

NARRATIVE: CASE EVENT DATE: 20170527
